FAERS Safety Report 7235582-8 (Version None)
Quarter: 2011Q1

REPORT INFORMATION
  Report Type: 
  Country: None (occurrence: None)
  Receive Date: 20110120
  Receipt Date: 20110110
  Transmission Date: 20110831
  Serious: Yes (Hospitalization, Other)
  Sender: FDA-Public Use
  Company Number: US-PFIZER INC-2010181769

PATIENT
  Sex: Male

DRUGS (4)
  1. KLONOPIN [Concomitant]
     Indication: ANXIETY
     Dosage: UNK
     Dates: start: 20060101, end: 20100101
  2. CHANTIX [Suspect]
     Indication: SMOKING CESSATION THERAPY
     Dosage: 0.5 MG/1 MG
     Dates: start: 20080501, end: 20080727
  3. ZYPREXA [Concomitant]
     Indication: BIPOLAR DISORDER
     Dosage: UNK
     Dates: start: 20060101
  4. DEPAKOTE [Concomitant]
     Indication: BIPOLAR DISORDER
     Dosage: UNK
     Dates: start: 20060101

REACTIONS (8)
  - MANIA [None]
  - ANXIETY [None]
  - AMNESIA [None]
  - ABNORMAL BEHAVIOUR [None]
  - DEPRESSION [None]
  - ROAD TRAFFIC ACCIDENT [None]
  - MULTIPLE INJURIES [None]
  - AGITATION [None]
